FAERS Safety Report 16259540 (Version 2)
Quarter: 2019Q2

REPORT INFORMATION
  Report Type: Spontaneous
  Country: SE (occurrence: SE)
  Receive Date: 20190501
  Receipt Date: 20190502
  Transmission Date: 20190711
  Serious: Yes (Hospitalization)
  Sender: FDA-Public Use
  Company Number: SE-TEVA-2019-SE-1043420

PATIENT
  Sex: Male

DRUGS (3)
  1. LOPERAMIDE [Suspect]
     Active Substance: LOPERAMIDE
     Dosage: ^8-12 PACKAGE DIMOR 16TH 2 MG ^
     Route: 048
     Dates: start: 20161019, end: 20161019
  2. OXASCAND [Concomitant]
     Active Substance: OXAZEPAM
  3. LOPERAMIDE [Suspect]
     Active Substance: LOPERAMIDE
     Dosage: ^8-12 PACKAGES DIMOR 16 PCS 2 MG^ ^CONSUMED UP TO TEN PACKAGES A DAY SINCE 2 MONTHS^
     Route: 048
     Dates: start: 201608, end: 20161018

REACTIONS (5)
  - Intentional overdose [Recovered/Resolved]
  - Toxicity to various agents [Recovered/Resolved]
  - Ventricular extrasystoles [Recovered/Resolved]
  - Drug abuse [Recovered/Resolved]
  - Intentional self-injury [Recovered/Resolved]

NARRATIVE: CASE EVENT DATE: 20161019
